FAERS Safety Report 12628467 (Version 1)
Quarter: 2016Q3

REPORT INFORMATION
  Report Type: Spontaneous
  Country: US (occurrence: US)
  Receive Date: 20160808
  Receipt Date: 20160808
  Transmission Date: 20161109
  Serious: No
  Sender: FDA-Public Use
  Company Number: US-JAZZ-2016-US-004024

PATIENT
  Age: 48 Year
  Sex: Male

DRUGS (17)
  1. BENADRYL [Concomitant]
     Active Substance: DIPHENHYDRAMINE HYDROCHLORIDE
  2. LIMBITROL [Concomitant]
     Active Substance: AMITRIPTYLINE\CHLORDIAZEPOXIDE
  3. CYMBALTA [Concomitant]
     Active Substance: DULOXETINE HYDROCHLORIDE
  4. XYREM [Suspect]
     Active Substance: SODIUM OXYBATE
     Indication: NARCOLEPSY
     Dosage: 2.25 G, BID
     Route: 048
     Dates: start: 201211, end: 201212
  5. EXALGO [Concomitant]
     Active Substance: HYDROMORPHONE HYDROCHLORIDE
  6. METFORMIN [Concomitant]
     Active Substance: METFORMIN HYDROCHLORIDE
  7. MORPHINE SULF [Concomitant]
     Active Substance: MORPHINE SULFATE
  8. OXYCODONE AND ACETAMINOPHEN [Concomitant]
     Active Substance: ACETAMINOPHEN\OXYCODONE HYDROCHLORIDE
  9. SKELAXIN [Concomitant]
     Active Substance: METAXALONE
  10. AMBIEN [Concomitant]
     Active Substance: ZOLPIDEM TARTRATE
  11. XYREM [Suspect]
     Active Substance: SODIUM OXYBATE
     Indication: CATAPLEXY
     Dosage: DOSE ADJUSTMENT
     Route: 048
  12. XYREM [Suspect]
     Active Substance: SODIUM OXYBATE
     Dosage: 4.5 G, BID
     Route: 048
     Dates: start: 2012, end: 2014
  13. GLIPIZIDE. [Concomitant]
     Active Substance: GLIPIZIDE
  14. ENDOCET [Concomitant]
     Active Substance: ACETAMINOPHEN\OXYCODONE HYDROCHLORIDE
  15. EPIPEN [Concomitant]
     Active Substance: EPINEPHRINE
  16. REQUIP [Concomitant]
     Active Substance: ROPINIROLE HYDROCHLORIDE
  17. XARTEMIS [Concomitant]

REACTIONS (1)
  - Loss of consciousness [Unknown]

NARRATIVE: CASE EVENT DATE: 201211
